FAERS Safety Report 5753933-8 (Version None)
Quarter: 2008Q2

REPORT INFORMATION
  Report Type: 
  Country: None (occurrence: None)
  Receive Date: 20080527
  Receipt Date: 20080527
  Transmission Date: 20081010
  Serious: Yes (Hospitalization)
  Sender: FDA-Public Use
  Company Number: None

PATIENT
  Age: 45 Year
  Sex: Male
  Weight: 102.5129 kg

DRUGS (1)
  1. CEFDINIR [Suspect]
     Indication: SINUSITIS
     Dosage: 1 PILL      2X A DAY      PO
     Route: 048
     Dates: start: 20080512, end: 20080525

REACTIONS (5)
  - ANXIETY [None]
  - ASTHENIA [None]
  - FATIGUE [None]
  - LABORATORY TEST ABNORMAL [None]
  - RED BLOOD CELL SEDIMENTATION RATE INCREASED [None]
